FAERS Safety Report 5770575-9 (Version None)
Quarter: 2008Q2

REPORT INFORMATION
  Report Type: 
  Country: None (occurrence: None)
  Receive Date: 20080613
  Receipt Date: 20080507
  Transmission Date: 20081010
  Serious: No
  Sender: FDA-Public Use
  Company Number: US-ABBOTT-08P-163-0450740-00

PATIENT
  Sex: Female
  Weight: 37.6 kg

DRUGS (6)
  1. HUMIRA [Suspect]
     Indication: JUVENILE ARTHRITIS
     Route: 058
     Dates: start: 20080201
  2. HUMIRA [Suspect]
     Route: 058
  3. METHOTREXATE [Concomitant]
     Indication: JUVENILE ARTHRITIS
  4. NAPROXEN [Concomitant]
     Indication: JUVENILE ARTHRITIS
  5. PREDNISONE TAB [Concomitant]
     Indication: JUVENILE ARTHRITIS
  6. HYDROXYCHLOROQUINE SULFATE [Concomitant]
     Indication: JUVENILE ARTHRITIS

REACTIONS (1)
  - ARTHRITIS [None]
